FAERS Safety Report 9825871 (Version 1)
Quarter: 2014Q1

REPORT INFORMATION
  Report Type: Spontaneous
  Country: US (occurrence: None)
  Receive Date: 20140115
  Receipt Date: 20140115
  Transmission Date: 20141002
  Serious: Yes (Hospitalization, Other)
  Sender: FDA-Public Use
  Company Number: US-ZYDUS-002465

PATIENT
  Age: 53 Year
  Sex: Female

DRUGS (1)
  1. AZATHIOPRINE (AZATHIOPRINE) [Suspect]
     Indication: PERIPHERAL SENSORY NEUROPATHY
     Dosage: 50.00-MG-1.0DAYS

REACTIONS (7)
  - Aplastic anaemia [None]
  - Candida infection [None]
  - Bacteroides infection [None]
  - Thrombocytopenia [None]
  - Pulmonary alveolar haemorrhage [None]
  - Zygomycosis [None]
  - Pancytopenia [None]
